FAERS Safety Report 7816425-8 (Version None)
Quarter: 2011Q4

REPORT INFORMATION
  Report Type: 
  Country: None (occurrence: None)
  Receive Date: 20111017
  Receipt Date: 20111005
  Transmission Date: 20120403
  Serious: Yes (Other)
  Sender: FDA-Public Use
  Company Number: GB-JNJFOC-20110912030

PATIENT
  Age: 40 Year
  Sex: Male

DRUGS (2)
  1. CLOZARIL [Suspect]
     Indication: SCHIZOPHRENIA
     Route: 048
     Dates: start: 20110825, end: 20110923
  2. HALOPERIDOL [Suspect]
     Indication: PRODUCT USED FOR UNKNOWN INDICATION
     Route: 065

REACTIONS (6)
  - URINARY TRACT INFECTION [None]
  - CONFUSIONAL STATE [None]
  - ABDOMINAL PAIN LOWER [None]
  - SALIVARY HYPERSECRETION [None]
  - SOMNOLENCE [None]
  - URINARY INCONTINENCE [None]
